FAERS Safety Report 9324505 (Version 2)
Quarter: 2013Q2

REPORT INFORMATION
  Report Type: Report from Study
  Country: JP (occurrence: JP)
  Receive Date: 20130603
  Receipt Date: 20130628
  Transmission Date: 20140414
  Serious: Yes (Hospitalization)
  Sender: FDA-Public Use
  Company Number: JP-ASTRAZENECA-2013SE38334

PATIENT
  Age: 25300 Day
  Sex: Male

DRUGS (15)
  1. MEROPEN [Suspect]
     Indication: PNEUMONIA
     Route: 042
     Dates: start: 20130322, end: 20130328
  2. MEROPEN [Suspect]
     Indication: PNEUMONIA
     Route: 042
     Dates: start: 20130329, end: 20130329
  3. ZYVOX [Concomitant]
     Dates: start: 20130321, end: 20130325
  4. CANCIDAS [Concomitant]
     Dates: start: 20130321, end: 20130328
  5. DEXMEDETOMIDINE HYDROCHLORIDE [Concomitant]
     Dates: start: 20130321, end: 20130328
  6. HEPARIN SODIUM [Concomitant]
     Dates: start: 20130321
  7. NORADRENALINE [Concomitant]
     Dates: start: 20130321, end: 20130329
  8. CLARITHROMYCIN [Concomitant]
     Route: 048
     Dates: start: 20130321
  9. PANVITAN [Concomitant]
     Route: 048
     Dates: start: 20130321
  10. EPADEL [Concomitant]
     Route: 048
     Dates: start: 20130321
  11. ENTERONON-R [Concomitant]
     Route: 048
     Dates: start: 20130321
  12. MUCODYNE DS [Concomitant]
     Route: 048
     Dates: start: 20130321
  13. MUCOSOLVAN [Concomitant]
     Route: 048
     Dates: start: 20130321
  14. GLUCONSAN K [Concomitant]
     Route: 048
     Dates: start: 20130326
  15. ITRIZOLE [Concomitant]
     Route: 048
     Dates: start: 20130328

REACTIONS (1)
  - Disseminated intravascular coagulation [Recovered/Resolved]
